FAERS Safety Report 4952182-0 (Version None)
Quarter: 2006Q1

REPORT INFORMATION
  Report Type: 
  Country: None (occurrence: None)
  Receive Date: 20060323
  Receipt Date: 20060309
  Transmission Date: 20060701
  Serious: Yes (Other)
  Sender: FDA-Public Use
  Company Number: PHFR2006IE01104

PATIENT
  Age: 30 Year
  Sex: Female

DRUGS (2)
  1. CLOZARIL [Suspect]
     Indication: SCHIZOPHRENIA
     Route: 048
     Dates: start: 20060214
  2. CLOZARIL [Suspect]
     Dosage: 100 MG, BID
     Route: 048

REACTIONS (4)
  - CARDIAC MURMUR [None]
  - ELECTROCARDIOGRAM QT PROLONGED [None]
  - HYPERTROPHIC CARDIOMYOPATHY [None]
  - SINUS TACHYCARDIA [None]
